FAERS Safety Report 12231828 (Version 1)
Quarter: 2016Q2

REPORT INFORMATION
  Report Type: Report from Study
  Country: AU (occurrence: AU)
  Receive Date: 20160401
  Receipt Date: 20160401
  Transmission Date: 20160815
  Serious: Yes (Other)
  Sender: FDA-Public Use
  Company Number: AU-BAXTER-2016BAX008362

PATIENT
  Age: 25 Year
  Sex: Male

DRUGS (2)
  1. BAXTER 25% GLUCOSE 250MG_1L INJECTION BP BAG AHB0224 [Suspect]
     Active Substance: DEXTROSE
     Indication: GLUCOSE TOLERANCE TEST
     Route: 042
     Dates: start: 201602
  2. BAXTER 25% GLUCOSE 250MG_1L INJECTION BP BAG AHB0224 [Suspect]
     Active Substance: DEXTROSE
     Dosage: SECOND ADMINISTRATION
     Route: 042
     Dates: start: 201602

REACTIONS (2)
  - Pain [Recovered/Resolved]
  - Burning sensation [Recovered/Resolved]
